FAERS Safety Report 25205271 (Version 2)
Quarter: 2025Q2

REPORT INFORMATION
  Report Type: Report from Study
  Country: PE (occurrence: PE)
  Receive Date: 20250417
  Receipt Date: 20250425
  Transmission Date: 20250716
  Serious: Yes (Hospitalization, Other)
  Sender: EMD SERONO INC
  Company Number: PE-Merck Healthcare KGaA-2025018850

PATIENT
  Sex: Female

DRUGS (1)
  1. REBIF [Suspect]
     Active Substance: INTERFERON BETA-1A
     Indication: Multiple sclerosis
     Dates: start: 20220930

REACTIONS (4)
  - Brain neoplasm [Not Recovered/Not Resolved]
  - Hemiplegia [Not Recovered/Not Resolved]
  - Product availability issue [Not Recovered/Not Resolved]
  - Product administration interrupted [Not Recovered/Not Resolved]
